FAERS Safety Report 5697176-5 (Version None)
Quarter: 2008Q2

REPORT INFORMATION
  Report Type: 
  Country: None (occurrence: None)
  Receive Date: 20080408
  Receipt Date: 20080328
  Transmission Date: 20081010
  Serious: Yes (Hospitalization)
  Sender: FDA-Public Use
  Company Number: FR-WYE-G01316208

PATIENT
  Age: 63 Year
  Sex: Female

DRUGS (9)
  1. RAPAMUNE [Suspect]
     Indication: RENAL TRANSPLANT
     Dosage: 1 MG (FREQUENCY UNKNOWN)
     Route: 048
     Dates: start: 20071211, end: 20080109
  2. ISOPTIN - SLOW RELEASE [Concomitant]
     Dosage: 40 MG (FREQUENCY UNKNOWN)
  3. LASILIX [Concomitant]
     Dosage: 40 MG (FREQUENCY UNKNOWN)
  4. INSULIN LISPRO [Concomitant]
     Indication: INSULIN-REQUIRING TYPE 2 DIABETES MELLITUS
     Dosage: UNKNOWN
  5. EZETROL [Concomitant]
     Dosage: 10 MG (FREQUENCY UNKNOWN)
  6. MEDIATOR [Concomitant]
     Dosage: 100 MG (FREQUENCY UNKNOWN)
  7. HYTACAND [Concomitant]
     Dosage: UNKNOWN
  8. CELLCEPT [Concomitant]
     Indication: RENAL TRANSPLANT
     Dosage: 1000 MG TOTAL DAILY
     Route: 048
     Dates: start: 20010101
  9. PLAVIX [Concomitant]
     Dosage: UNKNOWN

REACTIONS (3)
  - ACUTE CORONARY SYNDROME [None]
  - BRONCHITIS [None]
  - PNEUMONIA [None]
